FAERS Safety Report 24810809 (Version 1)
Quarter: 2025Q1

REPORT INFORMATION
  Report Type: Report from Study
  Country: US (occurrence: US)
  Receive Date: 20250106
  Receipt Date: 20250106
  Transmission Date: 20250409
  Serious: Yes (Other)
  Sender: ABBVIE
  Company Number: US-ABBVIE-6060872

PATIENT
  Age: 62 Year
  Sex: Male

DRUGS (1)
  1. HUMIRA [Suspect]
     Active Substance: ADALIMUMAB
     Indication: Rheumatoid arthritis
     Route: 058
     Dates: start: 20200506

REACTIONS (4)
  - Melanocytic naevus [Unknown]
  - Malignant melanoma [Unknown]
  - Immunodeficiency [Unknown]
  - Skin mass [Unknown]

NARRATIVE: CASE EVENT DATE: 20230101
